FAERS Safety Report 16068333 (Version 2)
Quarter: 2019Q1

REPORT INFORMATION
  Report Type: Spontaneous
  Country: GB (occurrence: GB)
  Receive Date: 20190313
  Receipt Date: 20190321
  Transmission Date: 20190418
  Serious: Yes (Other)
  Sender: FDA-Public Use
  Company Number: GB-GLAXOSMITHKLINE-GB2019GSK044214

PATIENT
  Age: 80 Year
  Sex: Male
  Weight: 76 kg

DRUGS (1)
  1. NUCALA [Suspect]
     Active Substance: MEPOLIZUMAB
     Indication: ASTHMA
     Dosage: UNK
     Dates: start: 20181109

REACTIONS (2)
  - Syncope [Unknown]
  - Dizziness [Unknown]

NARRATIVE: CASE EVENT DATE: 201811
